FAERS Safety Report 22110591 (Version 1)
Quarter: 2023Q1

REPORT INFORMATION
  Report Type: Other
  Country: US (occurrence: None)
  Receive Date: 20230317
  Receipt Date: 20230317
  Transmission Date: 20230417
  Serious: Yes (Hospitalization)
  Sender: FDA-Public Use
  Company Number: US-ROCHE-3309229

PATIENT
  Age: 51 Year
  Sex: Female
  Weight: 51.302 kg

DRUGS (6)
  1. OCREVUS [Suspect]
     Active Substance: OCRELIZUMAB
     Indication: Multiple sclerosis
     Dosage: 300 MG AT DAY 0 AND 15
     Route: 042
  2. TRAMADOL [Concomitant]
     Active Substance: TRAMADOL
  3. BACLOFEN [Concomitant]
     Active Substance: BACLOFEN
  4. DOXYCYCLINE [Concomitant]
     Active Substance: DOXYCYCLINE
  5. ASPIRIN [Concomitant]
     Active Substance: ASPIRIN
  6. ATORVASTATIN [Concomitant]
     Active Substance: ATORVASTATIN

REACTIONS (6)
  - Pneumonia [Recovered/Resolved]
  - Feeding disorder [Not Recovered/Not Resolved]
  - Hip fracture [Not Recovered/Not Resolved]
  - Pain [Not Recovered/Not Resolved]
  - Calculus bladder [Unknown]
  - Illness [Unknown]

NARRATIVE: CASE EVENT DATE: 20221101
